FAERS Safety Report 8054339-1 (Version None)
Quarter: 2012Q1

REPORT INFORMATION
  Report Type: 
  Country: None (occurrence: None)
  Receive Date: 20120118
  Receipt Date: 20120113
  Transmission Date: 20120608
  Serious: Yes (Death)
  Sender: FDA-Public Use
  Company Number: PHHY2011JP20502

PATIENT
  Sex: Male
  Weight: 70 kg

DRUGS (6)
  1. URSO 250 [Concomitant]
     Indication: RENAL CELL CARCINOMA
     Dosage: 150 MG, UNK
     Route: 048
     Dates: start: 20100817
  2. INTERFERON ALFA [Concomitant]
     Indication: METASTATIC RENAL CELL CARCINOMA
     Dosage: 6000000 IU, UNK
     Dates: start: 20090301, end: 20090701
  3. OXYCONTIN [Concomitant]
     Indication: RENAL CELL CARCINOMA
     Dosage: 20 MG, UNK
     Dates: start: 20100831
  4. AFINITOR [Suspect]
     Indication: METASTATIC RENAL CELL CARCINOMA
     Dosage: 5 MG,DAILY
     Route: 048
     Dates: start: 20100716
  5. SUNITINIB MALATE [Concomitant]
     Indication: METASTATIC RENAL CELL CARCINOMA
     Dosage: 37 MG, UNK
     Route: 048
     Dates: start: 20100101, end: 20100701
  6. SORAFENIB TOSILATE [Concomitant]
     Indication: METASTATIC RENAL CELL CARCINOMA
     Dosage: 400 MG, UNK
     Route: 048
     Dates: start: 20090701, end: 20091201

REACTIONS (3)
  - NEOPLASM MALIGNANT [None]
  - NEOPLASM PROGRESSION [None]
  - ACCIDENT [None]
